FAERS Safety Report 5664901-9 (Version None)
Quarter: 2008Q1

REPORT INFORMATION
  Report Type: 
  Country: None (occurrence: None)
  Receive Date: 20080314
  Receipt Date: 20080304
  Transmission Date: 20080703
  Serious: Yes (Congenital Anomaly)
  Sender: FDA-Public Use
  Company Number: JP-GILEAD-E2B_00000081

PATIENT
  Sex: Female

DRUGS (2)
  1. HEPSERA [Suspect]
     Indication: HEPATITIS B
     Dosage: 10MG PER DAY
     Route: 050
     Dates: start: 20050720
  2. ZEFIX [Suspect]
     Indication: HEPATITIS B
     Dosage: 100MG PER DAY
     Route: 050
     Dates: start: 20040820

REACTIONS (2)
  - PATENT DUCTUS ARTERIOSUS [None]
  - TRANSMISSION OF DRUG VIA SEMEN [None]
